FAERS Safety Report 11833703 (Version 1)
Quarter: 2015Q4

REPORT INFORMATION
  Report Type: Spontaneous
  Country: US (occurrence: US)
  Receive Date: 20151214
  Receipt Date: 20151214
  Transmission Date: 20160305
  Serious: Yes (Other)
  Sender: FDA-Public Use
  Company Number: US-TEVA-606778USA

PATIENT
  Sex: Female

DRUGS (8)
  1. BOTOX [Concomitant]
     Active Substance: ONABOTULINUMTOXINA
  2. SUMATRIPTAN. [Concomitant]
     Active Substance: SUMATRIPTAN
     Route: 045
  3. LAMICTAL [Concomitant]
     Active Substance: LAMOTRIGINE
     Dosage: AT NIGHT
  4. PERCOCET [Concomitant]
     Active Substance: ACETAMINOPHEN\OXYCODONE HYDROCHLORIDE
  5. SUMATRIPTAN. [Concomitant]
     Active Substance: SUMATRIPTAN
     Route: 048
  6. ZOFRAN [Concomitant]
     Active Substance: ONDANSETRON HYDROCHLORIDE
     Indication: NAUSEA
     Dosage: AS NEEDED
  7. ZECUITY [Suspect]
     Active Substance: SUMATRIPTAN SUCCINATE
     Indication: MIGRAINE
     Route: 062
     Dates: end: 20151029
  8. SUMATRIPTAN. [Concomitant]
     Active Substance: SUMATRIPTAN

REACTIONS (3)
  - Device adhesion issue [Recovered/Resolved with Sequelae]
  - Device leakage [Recovered/Resolved with Sequelae]
  - Product tampering [Recovered/Resolved with Sequelae]

NARRATIVE: CASE EVENT DATE: 20151006
